FAERS Safety Report 13777081 (Version 2)
Quarter: 2017Q3

REPORT INFORMATION
  Report Type: Spontaneous
  Country: US (occurrence: US)
  Receive Date: 20170721
  Receipt Date: 20170721
  Transmission Date: 20171127
  Serious: No
  Sender: FDA-Public Use
  Company Number: US-LANNETT COMPANY, INC.-US-2017LAN000929

PATIENT

DRUGS (5)
  1. COCAINE [Suspect]
     Active Substance: COCAINE
     Indication: NASAL CAVITY PACKING
     Dosage: 2 ML 80 MG, PLEDGET 20 MINUTES
     Route: 045
     Dates: start: 20161207, end: 20161207
  2. AVIANE [Concomitant]
     Active Substance: ETHINYL ESTRADIOL\LEVONORGESTREL
     Indication: PRODUCT USED FOR UNKNOWN INDICATION
     Dosage: 0.1-20 MG-MCG
     Route: 048
  3. VALIUM [Concomitant]
     Active Substance: DIAZEPAM
     Indication: PREMEDICATION
     Dosage: 10 MG, SINGLE
     Route: 048
     Dates: start: 20161207, end: 20161207
  4. LIDOCAINE                          /00033402/ [Concomitant]
     Active Substance: LIDOCAINE
     Indication: NASAL DECONGESTION THERAPY
     Dosage: UNK
     Route: 045
     Dates: start: 20161207, end: 20161207
  5. NEOSYNEPHRINE [Concomitant]
     Active Substance: PHENYLEPHRINE HYDROCHLORIDE
     Indication: NASAL DECONGESTION THERAPY
     Dosage: UNK
     Route: 045
     Dates: start: 20161207, end: 20161207

REACTIONS (4)
  - Procedural pain [Recovering/Resolving]
  - Procedural anxiety [Recovering/Resolving]
  - Drug ineffective [Recovering/Resolving]
  - Procedural headache [Recovering/Resolving]

NARRATIVE: CASE EVENT DATE: 20161207
